FAERS Safety Report 6410804-1 (Version None)
Quarter: 2009Q4

REPORT INFORMATION
  Report Type: 
  Country: None (occurrence: None)
  Receive Date: 20091022
  Receipt Date: 20090929
  Transmission Date: 20100525
  Serious: Yes (Other)
  Sender: FDA-Public Use
  Company Number: CHPA2009DE19646

PATIENT
  Sex: Female

DRUGS (2)
  1. NICOTINELL TTS (NCH) [Suspect]
     Indication: SMOKING CESSATION THERAPY
     Dosage: 21 MG, QD2SDO
     Route: 062
     Dates: start: 20090903, end: 20090929
  2. ZELDOX                                  /GFR/ [Concomitant]

REACTIONS (3)
  - ABNORMAL DREAMS [None]
  - ACUTE PSYCHOSIS [None]
  - CONFUSIONAL STATE [None]
